FAERS Safety Report 20898293 (Version 2)
Quarter: 2022Q3

REPORT INFORMATION
  Report Type: Spontaneous
  Country: CA (occurrence: CA)
  Receive Date: 20220531
  Receipt Date: 20220704
  Transmission Date: 20221026
  Serious: Yes (Life-Threatening)
  Sender: FDA-Public Use
  Company Number: CA-PFIZER INC-202200756334

PATIENT
  Age: 2 Year
  Sex: Male

DRUGS (2)
  1. SOMATROPIN [Suspect]
     Active Substance: SOMATROPIN
     Indication: Prader-Willi syndrome
     Dosage: 250 UG, 1X/DAY
     Route: 058
     Dates: start: 202109, end: 2022
  2. SOMATROPIN [Suspect]
     Active Substance: SOMATROPIN
     Dosage: 400 UG, 1X/DAY
     Route: 058
     Dates: start: 2022, end: 2022

REACTIONS (1)
  - Sleep apnoea syndrome [Unknown]
